FAERS Safety Report 19682865 (Version 5)
Quarter: 2021Q4

REPORT INFORMATION
  Report Type: Spontaneous
  Country: US (occurrence: US)
  Receive Date: 20210811
  Receipt Date: 20211005
  Transmission Date: 20220303
  Serious: Yes (Other)
  Sender: FDA-Public Use
  Company Number: US-ORGANON-O2108USA000124

PATIENT
  Age: 16 Year
  Sex: Female
  Weight: 106.12 kg

DRUGS (3)
  1. NEXPLANON [Suspect]
     Active Substance: ETONOGESTREL
     Dosage: 1 DOSAGE FORM (68 MG), LEFT  UPPER ARM
     Dates: start: 20210326, end: 20210910
  2. NEXPLANON [Suspect]
     Active Substance: ETONOGESTREL
     Indication: Vaginal haemorrhage
     Dosage: 1 IMPLANT OF 68 MILLIGRAM, LEFT ARM
     Dates: start: 20210910
  3. NEXPLANON [Suspect]
     Active Substance: ETONOGESTREL
     Indication: Contraception

REACTIONS (8)
  - Device dislocation [Recovered/Resolved]
  - Implant site injury [Unknown]
  - Implant site haemorrhage [Unknown]
  - Pain in extremity [Recovered/Resolved]
  - Device placement issue [Recovered/Resolved]
  - Device kink [Recovered/Resolved]
  - Device breakage [Recovered/Resolved]
  - Product use in unapproved indication [Unknown]

NARRATIVE: CASE EVENT DATE: 20210101
